FAERS Safety Report 4675231-6 (Version None)
Quarter: 2005Q2

REPORT INFORMATION
  Report Type: 
  Country: None (occurrence: None)
  Receive Date: 20050527
  Receipt Date: 20050330
  Transmission Date: 20051028
  Serious: Yes (Other)
  Sender: FDA-Public Use
  Company Number: PHEH2005US03884

PATIENT
  Age: 45 Year
  Sex: Male

DRUGS (6)
  1. INTERFERON ALFA [Concomitant]
     Indication: RENAL CELL CARCINOMA STAGE IV
     Dosage: 9 MIU, QD
     Dates: start: 20040226, end: 20041007
  2. PROCRIT /00909301/ [Concomitant]
     Indication: ANAEMIA
     Dosage: 40,000 UNITS/ML WEEKLY
     Dates: start: 20040422
  3. NEXIUM [Concomitant]
     Indication: GASTRITIS
     Dosage: 40 MG, QD
     Route: 065
  4. RADIATION THERAPY [Concomitant]
     Dates: start: 20040101, end: 20040101
  5. LOCAL ANAESTHETICS [Concomitant]
  6. ZOMETA [Suspect]
     Indication: METASTASES TO BONE
     Dosage: 4 MG, QMO
     Route: 042
     Dates: start: 20031106, end: 20041201

REACTIONS (8)
  - BONE DISORDER [None]
  - BREATH ODOUR [None]
  - JAW OPERATION [None]
  - MAXILLARY ANTRUM OPERATIONS [None]
  - OSTEOMYELITIS [None]
  - OSTEONECROSIS [None]
  - OSTEOTOMY [None]
  - WOUND DEBRIDEMENT [None]
